FAERS Safety Report 11441819 (Version 1)
Quarter: 2015Q3

REPORT INFORMATION
  Report Type: Spontaneous
  Country: US (occurrence: US)
  Receive Date: 20150901
  Receipt Date: 20150901
  Transmission Date: 20151125
  Serious: Yes (Other)
  Sender: FDA-Public Use
  Company Number: US-CELGENEUS-USA-2015083865

PATIENT
  Age: 66 Year
  Sex: Male
  Weight: 88.08 kg

DRUGS (2)
  1. REVLIMID [Suspect]
     Active Substance: LENALIDOMIDE
     Route: 048
     Dates: start: 20150429
  2. REVLIMID [Suspect]
     Active Substance: LENALIDOMIDE
     Indication: PLASMA CELL MYELOMA
     Route: 048
     Dates: start: 201401

REACTIONS (3)
  - Weight decreased [Unknown]
  - Osteomyelitis [Unknown]
  - Jaw disorder [Unknown]

NARRATIVE: CASE EVENT DATE: 201507
